FAERS Safety Report 4798269-7 (Version None)
Quarter: 2005Q4

REPORT INFORMATION
  Report Type: 
  Country: None (occurrence: None)
  Receive Date: 20051011
  Receipt Date: 20051011
  Transmission Date: 20060501
  Serious: No
  Sender: FDA-Public Use
  Company Number: None

PATIENT
  Age: 68 Year
  Sex: Male
  Weight: 97.5234 kg

DRUGS (4)
  1. AGGRENOX [Suspect]
     Indication: NERVOUS SYSTEM DISORDER
     Dosage: 1 CAPSULES TWICE A DAY OROPHARING
     Route: 049
     Dates: start: 20030916, end: 20050919
  2. AGGRENOX [Suspect]
     Indication: TRANSIENT ISCHAEMIC ATTACK
     Dosage: 1 CAPSULES TWICE A DAY OROPHARING
     Route: 049
     Dates: start: 20030916, end: 20050919
  3. AGGRENOX [Suspect]
     Indication: NERVOUS SYSTEM DISORDER
     Dosage: 1 CAPSULES TWICE A DAY OROPHARING
     Route: 049
     Dates: start: 20050922, end: 20050923
  4. AGGRENOX [Suspect]
     Indication: TRANSIENT ISCHAEMIC ATTACK
     Dosage: 1 CAPSULES TWICE A DAY OROPHARING
     Route: 049
     Dates: start: 20050922, end: 20050923

REACTIONS (9)
  - AGITATION [None]
  - BACK PAIN [None]
  - DIZZINESS [None]
  - HAEMORRHAGE [None]
  - HEADACHE [None]
  - PAIN [None]
  - PAIN IN EXTREMITY [None]
  - PARAESTHESIA [None]
  - TENDERNESS [None]
